FAERS Safety Report 4454423-5 (Version None)
Quarter: 2004Q3

REPORT INFORMATION
  Report Type: 
  Country: None (occurrence: None)
  Receive Date: 20040917
  Receipt Date: 20040917
  Transmission Date: 20050211
  Serious: Yes (Other)
  Sender: FDA-Public Use
  Company Number: None

PATIENT
  Age: 32 Year
  Sex: Male

DRUGS (1)
  1. ROCEPHIN [Suspect]
     Indication: CELLULITIS
     Dosage: 2 GM SIVP Q 24 HRS
     Route: 042
     Dates: start: 20040911, end: 20040911

REACTIONS (1)
  - INJECTION SITE RASH [None]
